FAERS Safety Report 8662923 (Version 2)
Quarter: 2013Q1

REPORT INFORMATION
  Report Type: Report from Study
  Country: BR (occurrence: BR)
  Receive Date: 20120712
  Receipt Date: 20130328
  Transmission Date: 20140127
  Serious: Yes (Hospitalization, Other)
  Sender: FDA-Public Use
  Company Number: BR-ROCHE-1086540

PATIENT
  Sex: Female
  Weight: 64 kg

DRUGS (6)
  1. ACTEMRA [Suspect]
     Indication: RHEUMATOID ARTHRITIS
     Route: 042
     Dates: start: 201201
  2. ACTEMRA [Suspect]
     Route: 042
     Dates: start: 201202
  3. ACTEMRA [Suspect]
     Route: 042
     Dates: start: 201203
  4. HIGROTON [Concomitant]
     Route: 065
  5. LOSARTAN [Concomitant]
     Route: 065
  6. HYDROCHLOROTHIAZIDE [Concomitant]
     Route: 065

REACTIONS (5)
  - Abdominal hernia [Unknown]
  - Diabetes mellitus [Not Recovered/Not Resolved]
  - Paraesthesia [Recovered/Resolved]
  - Headache [Recovered/Resolved]
  - Blood cholesterol increased [Unknown]
